FAERS Safety Report 14137413 (Version 3)
Quarter: 2018Q1

REPORT INFORMATION
  Report Type: Spontaneous
  Country: IT (occurrence: IT)
  Receive Date: 20171027
  Receipt Date: 20180214
  Transmission Date: 20180508
  Serious: Yes (Other)
  Sender: FDA-Public Use
  Company Number: IT-PFIZER INC-2017461931

PATIENT
  Age: 37 Year
  Sex: Female

DRUGS (3)
  1. ZOLOFT [Suspect]
     Active Substance: SERTRALINE HYDROCHLORIDE
     Indication: GENERALISED ANXIETY DISORDER
     Dosage: 50 MG, TOTAL
     Route: 048
     Dates: start: 20170926, end: 20170926
  2. VATRAN [Suspect]
     Active Substance: DIAZEPAM
     Indication: GENERALISED ANXIETY DISORDER
     Dosage: 10 MG, TOTAL
     Route: 048
     Dates: start: 20170926, end: 20170926
  3. ETILTOX [Suspect]
     Active Substance: DISULFIRAM
     Indication: GENERALISED ANXIETY DISORDER
     Dosage: 800 MG, TOTAL
     Route: 048
     Dates: start: 20170926, end: 20170926

REACTIONS (4)
  - Drug abuse [Recovered/Resolved]
  - Headache [Recovered/Resolved]
  - Intentional self-injury [Unknown]
  - Alcohol abuse [Recovered/Resolved]

NARRATIVE: CASE EVENT DATE: 20170926
